FAERS Safety Report 5165554-9 (Version None)
Quarter: 2006Q4

REPORT INFORMATION
  Report Type: 
  Country: None (occurrence: None)
  Receive Date: 20061124
  Receipt Date: 20061113
  Transmission Date: 20070319
  Serious: Yes (Other)
  Sender: FDA-Public Use
  Company Number: 2006137246

PATIENT

DRUGS (1)
  1. LIPITOR [Suspect]

REACTIONS (5)
  - BIOPSY MUSCLE ABNORMAL [None]
  - BLOOD CREATINE PHOSPHOKINASE INCREASED [None]
  - MUSCLE ATROPHY [None]
  - MUSCULAR WEAKNESS [None]
  - MYOSITIS [None]
